FAERS Safety Report 21610948 (Version 2)
Quarter: 2022Q4

REPORT INFORMATION
  Report Type: Spontaneous
  Country: DE (occurrence: DE)
  Receive Date: 20221117
  Receipt Date: 20221202
  Transmission Date: 20230113
  Serious: Yes (Other)
  Sender: FDA-Public Use
  Company Number: DE-TEVA-2022-DE-2053882

PATIENT
  Age: 13 Year
  Sex: Male

DRUGS (3)
  1. PREDNISONE [Suspect]
     Active Substance: PREDNISONE
     Indication: IgA nephropathy
     Dosage: 75 MILLIGRAM DAILY; DURATION:1MONTH
     Route: 048
  2. PREDNISONE [Suspect]
     Active Substance: PREDNISONE
     Dosage: 50MG EVERY ALTERNATE DAY
     Route: 048
  3. METHYLPREDNISOLONE [Suspect]
     Active Substance: METHYLPREDNISOLONE
     Indication: IgA nephropathy
     Dosage: PULSE METHYLPREDNISOLONE THERAPY FOR 3 CONSECUTIVE DAYS
     Route: 050

REACTIONS (3)
  - Depressed mood [Unknown]
  - Drug ineffective [Unknown]
  - Off label use [Unknown]
